FAERS Safety Report 8400173-X (Version None)
Quarter: 2012Q2

REPORT INFORMATION
  Report Type: 
  Country: None (occurrence: None)
  Receive Date: 20120531
  Receipt Date: 20120525
  Transmission Date: 20120825
  Serious: Yes (Hospitalization, Other)
  Sender: FDA-Public Use
  Company Number: BR-PFIZER INC-2012127904

PATIENT
  Age: 70 Year
  Sex: Female
  Weight: 86 kg

DRUGS (10)
  1. PROPRANOLOL HYDROCHLORIDE [Concomitant]
     Indication: BLOOD PRESSURE INCREASED
     Dosage: UNK
     Dates: start: 20040101
  2. LYRICA [Suspect]
     Indication: BACK PAIN
     Dosage: 75 MG (ONE CAPSULE), 1X/DAY
     Route: 048
     Dates: start: 20100225, end: 20101201
  3. INSULIN [Concomitant]
     Indication: DIABETES MELLITUS
     Dosage: UNK
     Dates: start: 20020101
  4. CLONAZEPAM [Concomitant]
     Indication: RELAXATION THERAPY
     Dosage: ONE TABLET DAILY
     Dates: start: 19920101
  5. LYRICA [Suspect]
     Dosage: UNK
  6. LISADOR [Concomitant]
     Indication: PAIN IN EXTREMITY
  7. LISADOR [Concomitant]
  8. METFORMIN HYDROCHLORIDE [Concomitant]
     Indication: DIABETES MELLITUS
     Dosage: 1 G, 2X/DAY
     Dates: start: 20020101
  9. EUTHYROX [Concomitant]
     Indication: THYROID DISORDER
     Dosage: ONE TABLET DAILY
     Dates: start: 20020101
  10. LISADOR [Concomitant]
     Indication: BACK PAIN
     Dosage: 35 DROPS, SOMETIMES
     Dates: start: 20101101

REACTIONS (3)
  - SPINAL CORD DISORDER [None]
  - HYPERTENSION [None]
  - PAIN IN EXTREMITY [None]
